FAERS Safety Report 19913563 (Version 1)
Quarter: 2021Q4

REPORT INFORMATION
  Report Type: Spontaneous
  Country: FR (occurrence: FR)
  Receive Date: 20211004
  Receipt Date: 20211004
  Transmission Date: 20220304
  Serious: Yes (Disabling)
  Sender: FDA-Public Use
  Company Number: FR-PHOENIX LABS UNLIMITED COMPANY-FR-P18030-21-00053

PATIENT
  Age: 68 Year
  Sex: Female

DRUGS (1)
  1. ZOLEDRONIC ACID [Suspect]
     Active Substance: ZOLEDRONIC ACID
     Indication: Product used for unknown indication
     Dosage: 5 MILLIGRAM PER MILLILITRE (5 MG/ML)
     Route: 065
     Dates: start: 20210517

REACTIONS (2)
  - Gait inability [Unknown]
  - Back pain [Unknown]

NARRATIVE: CASE EVENT DATE: 20210518
